FAERS Safety Report 10677102 (Version 5)
Quarter: 2015Q1

REPORT INFORMATION
  Report Type: Report from Study
  Country: US (occurrence: US)
  Receive Date: 20141226
  Receipt Date: 20150330
  Transmission Date: 20150720
  Serious: Yes (Hospitalization)
  Sender: FDA-Public Use
  Company Number: US-SA-2014SA125187

PATIENT
  Age: 42 Year
  Sex: Female
  Weight: 51.7 kg

DRUGS (4)
  1. AUBAGIO [Suspect]
     Active Substance: TERIFLUNOMIDE
     Indication: MULTIPLE SCLEROSIS
     Route: 048
     Dates: start: 20140828, end: 201502
  2. GABAPENTIN. [Concomitant]
     Active Substance: GABAPENTIN
     Indication: PAIN
  3. AUBAGIO [Suspect]
     Active Substance: TERIFLUNOMIDE
     Indication: MULTIPLE SCLEROSIS
     Route: 048
     Dates: start: 20140701
  4. BIOTIN [Concomitant]
     Active Substance: BIOTIN
     Indication: ALOPECIA
     Dates: start: 20131201

REACTIONS (15)
  - Asthenia [Not Recovered/Not Resolved]
  - Central nervous system lesion [Unknown]
  - Muscular weakness [Unknown]
  - Hemiparesis [Unknown]
  - Peroneal nerve palsy [Unknown]
  - Gait disturbance [Unknown]
  - Rash [Unknown]
  - Somnolence [Unknown]
  - Hypoaesthesia [Unknown]
  - Hypokinesia [Unknown]
  - Depression [Not Recovered/Not Resolved]
  - Multiple sclerosis relapse [Not Recovered/Not Resolved]
  - Fungal skin infection [Unknown]
  - Paraesthesia [Unknown]
  - Drug ineffective [Unknown]

NARRATIVE: CASE EVENT DATE: 20141001
